FAERS Safety Report 14845015 (Version 1)
Quarter: 2018Q2

REPORT INFORMATION
  Report Type: Spontaneous
  Country: DE (occurrence: DE)
  Receive Date: 20180504
  Receipt Date: 20180504
  Transmission Date: 20180711
  Serious: Yes (Death)
  Sender: FDA-Public Use
  Company Number: DE-ROCHE-234733

PATIENT
  Age: 60 Year
  Sex: Female
  Weight: 40 kg

DRUGS (43)
  1. ISOKET RETARD 60 [Suspect]
     Active Substance: ISOSORBIDE DINITRATE
     Indication: HYPERTONIA
     Route: 048
  2. PASPERTIN INJECTION (METOCLOPRAMIDE HYDROCHLORIDE) [Suspect]
     Active Substance: METOCLOPRAMIDE HYDROCHLORIDE
     Indication: NAUSEA
     Route: 048
     Dates: start: 19980814, end: 19980818
  3. DOPMIN [Concomitant]
     Indication: CIRCULATORY COLLAPSE
     Dosage: AS PER BODY WEIGHT
     Route: 042
     Dates: start: 19980808, end: 19980808
  4. PASPERTIN INJECTION [Concomitant]
     Indication: NAUSEA
     Dosage: DAILY DOSE=1 AMPULE
     Route: 042
     Dates: start: 19980808, end: 19980826
  5. SORTIS [Concomitant]
     Active Substance: ATORVASTATIN
     Indication: LIPIDS INCREASED
     Route: 048
  6. NOVALGIN (METAMIZOLE SODIUM) [Suspect]
     Active Substance: METAMIZOLE SODIUM
     Indication: PAIN
     Route: 048
     Dates: start: 19980811, end: 19980811
  7. FRAGMIN P FORTE [Suspect]
     Active Substance: DALTEPARIN SODIUM
     Indication: THROMBOSIS PROPHYLAXIS
     Route: 058
  8. TORASEMIDE [Suspect]
     Active Substance: TORSEMIDE
     Indication: CARDIAC FAILURE
     Route: 065
  9. PASPERTIN INJECTION (METOCLOPRAMIDE HYDROCHLORIDE) [Suspect]
     Active Substance: METOCLOPRAMIDE HYDROCHLORIDE
     Route: 048
  10. VANCOMYCIN [Suspect]
     Active Substance: VANCOMYCIN
     Indication: PRODUCT USED FOR UNKNOWN INDICATION
     Route: 042
     Dates: start: 19980812, end: 19980826
  11. DEPOT-INSULIN [Concomitant]
     Active Substance: INSULIN NOS
     Indication: DIABETES MELLITUS
     Route: 058
  12. ZOCOR [Concomitant]
     Active Substance: SIMVASTATIN
     Indication: HYPERTONIA
     Route: 048
     Dates: start: 19980803, end: 19980818
  13. KALIUMCHLORID [Concomitant]
     Indication: HYPOKALAEMIA
     Route: 048
     Dates: start: 19980818, end: 19980820
  14. KALINOR (POTASSIUM CHLORIDE) [Concomitant]
     Active Substance: POTASSIUM CHLORIDE
     Indication: HYPOKALAEMIA
     Route: 048
     Dates: start: 19980821, end: 19980821
  15. GLUCOSE [Concomitant]
     Active Substance: DEXTROSE
     Indication: FLUID REPLACEMENT
     Route: 042
     Dates: start: 19980824, end: 19980824
  16. PARACETAMOL [Concomitant]
     Active Substance: ACETAMINOPHEN
     Indication: ANALGESIC THERAPY
     Route: 048
  17. GLIBENCLAMIDE [Suspect]
     Active Substance: GLYBURIDE
     Indication: DIABETES MELLITUS
     Route: 048
  18. PASPERTIN INJECTION (METOCLOPRAMIDE HYDROCHLORIDE) [Suspect]
     Active Substance: METOCLOPRAMIDE HYDROCHLORIDE
     Route: 048
     Dates: start: 19980820, end: 19980820
  19. XANEF (ENALAPRIL MALEATE) [Suspect]
     Active Substance: ENALAPRIL MALEATE
     Indication: HYPERTONIA
     Route: 048
  20. ASPIRIN. [Suspect]
     Active Substance: ASPIRIN
     Indication: THROMBOSIS PROPHYLAXIS
     Route: 048
  21. HEPARIN-CALCIUM [Suspect]
     Active Substance: HEPARIN CALCIUM
     Indication: THROMBOSIS PROPHYLAXIS
     Route: 058
     Dates: start: 19980811, end: 19980818
  22. PRES [Suspect]
     Active Substance: ENALAPRIL MALEATE
     Indication: HYPERTONIA
     Route: 048
     Dates: start: 19980811, end: 19980817
  23. LOPIRIN COR [Concomitant]
     Active Substance: CAPTOPRIL
     Indication: HYPERTONIA
     Route: 048
  24. NOVODIGAL [Concomitant]
     Indication: CARDIAC FAILURE
     Route: 048
  25. TAVEGIL [Concomitant]
     Active Substance: CLEMASTINE FUMARATE
     Indication: ERYTHEMA
     Dosage: UNIT DOSE=1 AMPULE DAILY DOSE=1 AMPULE
     Route: 042
     Dates: start: 19980826, end: 19980826
  26. BENZYLPENICILLIN SODIUM [Suspect]
     Active Substance: PENICILLIN G SODIUM
     Indication: PNEUMONIA
     Route: 042
     Dates: start: 19980821, end: 19980826
  27. KALIUM-DURILES [Concomitant]
     Active Substance: POTASSIUM
     Indication: HYPOKALAEMIA
     Route: 048
     Dates: start: 19980814, end: 19980814
  28. LASIX [Suspect]
     Active Substance: FUROSEMIDE
     Indication: CARDIAC FAILURE
     Route: 048
  29. GLIBENCLAMIDE [Suspect]
     Active Substance: GLYBURIDE
     Route: 048
     Dates: start: 19980820, end: 19980821
  30. DIGIMERCK MINOR [Suspect]
     Active Substance: DIGITOXIN
     Indication: CARDIAC FAILURE
     Route: 048
  31. DILATREND [Suspect]
     Active Substance: CARVEDILOL
     Indication: HYPERTONIA
     Route: 048
  32. ERYFER (FERROUS SULFATE) [Concomitant]
     Active Substance: FERROUS SULFATE
     Indication: ANAEMIA
     Route: 048
  33. TUTOFUSIN [Concomitant]
     Indication: FLUID REPLACEMENT
     Route: 042
     Dates: start: 19980811, end: 19980817
  34. KALIUMCHLORID [Concomitant]
     Indication: HYPOKALAEMIA
     Route: 042
     Dates: start: 19980828, end: 19980828
  35. STEROFUNDIN [Concomitant]
     Active Substance: CALCIUM CHLORIDE\MAGNESIUM CHLORIDE\POTASSIUM CHLORIDE\SODIUM ACETATE\SODIUM CHLORIDE
     Indication: FLUID REPLACEMENT
     Dosage: THE PATIENT RECEIVED 4500 ML (APPROX.) OF STEROFUNDIN OVER THIS PERIOD
     Route: 042
     Dates: start: 19980821, end: 19980828
  36. IRENAT [Concomitant]
     Active Substance: SODIUM PERCHLORATE
     Indication: HYPERTHYROIDISM
     Route: 048
  37. ANTRA [Concomitant]
     Active Substance: OMEPRAZOLE
     Indication: PROPHYLAXIS AGAINST GASTROINTESTINAL ULCER
     Route: 048
  38. CARBIMAZOL [Concomitant]
     Active Substance: CARBIMAZOLE
     Indication: HYPERTHYROIDISM
     Dosage: BID/TID
     Route: 048
  39. KALINOR (POTASSIUM CHLORIDE) [Concomitant]
     Active Substance: POTASSIUM CHLORIDE
     Indication: HYPOKALAEMIA
     Route: 048
     Dates: start: 19980824, end: 19980825
  40. SOLU-DECORTIN H [Concomitant]
     Indication: ERYTHEMA
     Route: 042
     Dates: start: 19980826, end: 19980826
  41. TAGAMET INTRAVENOUS [Concomitant]
     Indication: PROPHYLAXIS AGAINST GASTROINTESTINAL ULCER
     Dosage: DAILY DOSE=1 AMPULE
     Route: 042
     Dates: start: 19980826, end: 19980826
  42. ZIENAM [Concomitant]
     Active Substance: CILASTATIN SODIUM\IMIPENEM
     Indication: SEPSIS
     Route: 042
  43. BEPANTHEN INJEKTIONSLOESUNG [Concomitant]
     Indication: CIRCULATORY COLLAPSE
     Dosage: DAILY DOSE=4 AMPULE
     Route: 042
     Dates: start: 19980808, end: 19980808

REACTIONS (3)
  - Toxic epidermal necrolysis [Fatal]
  - Circulatory collapse [Fatal]
  - Sepsis [None]

NARRATIVE: CASE EVENT DATE: 19980826
